FAERS Safety Report 7180356-X (Version None)
Quarter: 2010Q4

REPORT INFORMATION
  Report Type: 
  Country: None (occurrence: None)
  Receive Date: 20101221
  Receipt Date: 20101213
  Transmission Date: 20110411
  Serious: Yes (Other)
  Sender: FDA-Public Use
  Company Number: A0900508A

PATIENT
  Sex: Female

DRUGS (4)
  1. COMBIVIR [Suspect]
     Indication: HIV INFECTION
     Dates: start: 20090101
  2. PREZISTA [Suspect]
     Indication: HIV INFECTION
     Dosage: 600MGD PER DAY
     Dates: start: 20090101
  3. NORVIR [Suspect]
     Indication: HIV INFECTION
     Dosage: 200MGD PER DAY
     Dates: start: 20090101
  4. EFAVIRENZ [Suspect]
     Indication: HIV INFECTION
     Dates: start: 20090101

REACTIONS (2)
  - CONGENITAL ANOMALY [None]
  - DRUG EXPOSURE DURING PREGNANCY [None]
